FAERS Safety Report 18631044 (Version 1)
Quarter: 2020Q4

REPORT INFORMATION
  Report Type: Spontaneous
  Country: US (occurrence: US)
  Receive Date: 20201217
  Receipt Date: 20201217
  Transmission Date: 20210114
  Serious: No
  Sender: FDA-Public Use
  Company Number: US-ROCHE-2716321

PATIENT
  Age: 39 Year
  Sex: Male

DRUGS (5)
  1. XOFLUZA [Suspect]
     Active Substance: BALOXAVIR MARBOXIL
     Indication: INFLUENZA
     Route: 048
     Dates: start: 202011, end: 202011
  2. FLONASE [Concomitant]
     Active Substance: FLUTICASONE PROPIONATE
     Indication: INFLUENZA
     Dosage: 2 SPRAYS EACH NOSTRIL X 10 DAYS
     Route: 045
     Dates: start: 202011
  3. PREDNISONE. [Concomitant]
     Active Substance: PREDNISONE
     Indication: INFLUENZA
     Dosage: 2 TABLETS BY MOUTH X 5 DAYS
     Route: 048
     Dates: start: 202011
  4. SINGULAIR [Concomitant]
     Active Substance: MONTELUKAST SODIUM
     Indication: INFLUENZA
     Dosage: 1 TABLET BY MOUTH X 10 DAYS
     Route: 048
     Dates: start: 202011
  5. ZITHROMAX [Concomitant]
     Active Substance: AZITHROMYCIN DIHYDRATE
     Indication: INFLUENZA
     Dosage: TAKE AS DIRECTED X 10 DAYS
     Route: 048
     Dates: start: 202011

REACTIONS (2)
  - Product dispensing error [Unknown]
  - No adverse event [Unknown]

NARRATIVE: CASE EVENT DATE: 202011
